FAERS Safety Report 5766360-4 (Version None)
Quarter: 2008Q2

REPORT INFORMATION
  Report Type: 
  Country: None (occurrence: None)
  Receive Date: 20080611
  Receipt Date: 20080528
  Transmission Date: 20081010
  Serious: Yes (Death, Hospitalization)
  Sender: FDA-Public Use
  Company Number: US-AMGEN-US266923

PATIENT
  Sex: Male

DRUGS (6)
  1. PANITUMUMAB [Suspect]
     Indication: COLORECTAL CANCER
     Route: 042
     Dates: start: 20070918, end: 20080213
  2. IRINOTECAN HCL [Suspect]
     Route: 065
     Dates: start: 20070918, end: 20080213
  3. FLUOROURACIL [Suspect]
     Route: 065
     Dates: start: 20070918, end: 20080213
  4. LEUCOVORIN CALCIUM [Concomitant]
     Route: 065
     Dates: start: 20070918, end: 20080213
  5. INSULIN [Concomitant]
     Route: 058
  6. ARICEPT [Concomitant]

REACTIONS (2)
  - RENAL FAILURE ACUTE [None]
  - SEPSIS [None]
